FAERS Safety Report 8770326 (Version 1)
Quarter: 2012Q4

REPORT INFORMATION
  Report Type: 
  Country: AT (occurrence: AT)
  Receive Date: 20120906
  Receipt Date: 20120906
  Transmission Date: 20130627
  Serious: Yes (Other)
  Sender: FDA-Public Use
  Company Number: AT-PFIZER INC-2012215290

PATIENT
  Age: 76 Year
  Sex: Female

DRUGS (1)
  1. LIDOCAINE HCL [Suspect]
     Indication: LOCAL ANAESTHESIA
     Dosage: 4ml of 2%, unknown

REACTIONS (3)
  - Diplopia [Recovered/Resolved]
  - Extraocular muscle disorder [Recovered/Resolved]
  - Periorbital haematoma [Unknown]
